FAERS Safety Report 9369901 (Version 4)
Quarter: 2013Q3

REPORT INFORMATION
  Report Type: Spontaneous
  Country: US (occurrence: US)
  Receive Date: 20130626
  Receipt Date: 20130819
  Transmission Date: 20140515
  Serious: Yes (Other)
  Sender: FDA-Public Use
  Company Number: US-PFIZER INC-2013186427

PATIENT
  Age: 58 Year
  Sex: Female
  Weight: 59.86 kg

DRUGS (2)
  1. PREMARIN [Suspect]
     Indication: MENOPAUSE
     Dosage: UNK, 2X/WEEK
     Route: 067
     Dates: start: 200201
  2. BABY ASPIRIN [Concomitant]
     Dosage: 81 MG, UNK

REACTIONS (1)
  - Hypertension [Unknown]
